FAERS Safety Report 15453616 (Version 1)
Quarter: 2018Q4

REPORT INFORMATION
  Report Type: Spontaneous
  Country: US (occurrence: US)
  Receive Date: 20181001
  Receipt Date: 20181001
  Transmission Date: 20190204
  Serious: No
  Sender: FDA-Public Use
  Company Number: US-JNJFOC-20180906355

PATIENT
  Sex: Female
  Weight: 146.51 kg

DRUGS (4)
  1. CORMAX [Concomitant]
     Active Substance: CLOBETASOL PROPIONATE
  2. THORAZINE [Concomitant]
     Active Substance: CHLORPROMAZINE
  3. METHOTREXATE. [Concomitant]
     Active Substance: METHOTREXATE
  4. TREMFYA [Suspect]
     Active Substance: GUSELKUMAB
     Indication: PSORIASIS
     Route: 065
     Dates: start: 201709

REACTIONS (1)
  - Toothache [Not Recovered/Not Resolved]

NARRATIVE: CASE EVENT DATE: 2018
